FAERS Safety Report 25390850 (Version 1)
Quarter: 2025Q2

REPORT INFORMATION
  Report Type: Spontaneous
  Country: US (occurrence: US)
  Receive Date: 20250603
  Receipt Date: 20250603
  Transmission Date: 20250716
  Serious: Yes (Other)
  Sender: DR REDDYS
  Company Number: None

PATIENT
  Age: 2 Decade
  Sex: Male
  Weight: 76.65 kg

DRUGS (1)
  1. TESTOSTERONE [Suspect]
     Active Substance: TESTOSTERONE
     Indication: Secondary hypogonadism

REACTIONS (3)
  - Obstructive sleep apnoea syndrome [Recovering/Resolving]
  - Condition aggravated [Recovering/Resolving]
  - Graft overgrowth [Recovering/Resolving]

NARRATIVE: CASE EVENT DATE: 20190101
